FAERS Safety Report 4753467-3 (Version None)
Quarter: 2005Q3

REPORT INFORMATION
  Report Type: 
  Country: None (occurrence: None)
  Receive Date: 20050824
  Receipt Date: 20050812
  Transmission Date: 20060218
  Serious: Yes (Death, Hospitalization)
  Sender: FDA-Public Use
  Company Number: HQWYE893112AUG05

PATIENT
  Age: 88 Year
  Sex: Female

DRUGS (8)
  1. CORDARONE [Suspect]
     Indication: ATRIAL FIBRILLATION
     Dosage: 200 MG 1X PER 1 DAY
     Route: 048
     Dates: end: 20030203
  2. EUPRESSYL (URAPIDIL) [Concomitant]
  3. FUROSEMIDE [Concomitant]
  4. LEVOTHYROXINE SODIUM [Concomitant]
  5. RAMIPRIL [Concomitant]
  6. KARDEGIC (ACETYLSALICYLATE LYSINE) [Concomitant]
  7. LORAZEPAM [Concomitant]
  8. ARICEPT [Concomitant]

REACTIONS (8)
  - ASPIRATION [None]
  - CARDIAC DISORDER [None]
  - CARDIAC FAILURE [None]
  - CONDITION AGGRAVATED [None]
  - HYPONATRAEMIA [None]
  - HYPOTHYROIDISM [None]
  - PLEURAL EFFUSION [None]
  - RESPIRATORY DISORDER [None]
